FAERS Safety Report 23409948 (Version 1)
Quarter: 2024Q1

REPORT INFORMATION
  Report Type: Spontaneous
  Country: US (occurrence: US)
  Receive Date: 20240117
  Receipt Date: 20240117
  Transmission Date: 20240410
  Serious: Yes (Hospitalization)
  Sender: FDA-Public Use
  Company Number: US-BEIGENE-BGN-2022-012103

PATIENT
  Age: 66 Year
  Sex: Male

DRUGS (6)
  1. TISLELIZUMAB [Suspect]
     Active Substance: TISLELIZUMAB
     Indication: Oesophageal adenocarcinoma
     Dosage: 400 MG
     Route: 042
     Dates: start: 20221205
  2. SIREXATAMAB [Suspect]
     Active Substance: SIREXATAMAB
     Indication: Oesophageal adenocarcinoma
     Dosage: 400 MG
     Route: 042
     Dates: start: 20221205
  3. OXALIPLATIN [Suspect]
     Active Substance: OXALIPLATIN
     Indication: Oesophageal adenocarcinoma
     Dosage: 85 MG/M2, DAY 1
     Route: 042
     Dates: start: 20221112
  4. FLUOROURACIL [Concomitant]
     Active Substance: FLUOROURACIL
     Indication: Oesophageal adenocarcinoma
     Dosage: 1200 MG/M2, DAY 1, Q14D
     Route: 042
     Dates: start: 20221112, end: 20221221
  5. FLUOROURACIL [Concomitant]
     Active Substance: FLUOROURACIL
     Dosage: 1200 MG/M2, DAY 1, Q14D
     Route: 065
     Dates: start: 20230104
  6. LEUCOVORIN [Concomitant]
     Active Substance: LEUCOVORIN\LEUCOVORIN CALCIUM
     Indication: Oesophageal adenocarcinoma
     Dosage: 400 MG/M2, DAY 1, Q14D
     Route: 042
     Dates: start: 20221112

REACTIONS (1)
  - Pyrexia [Recovered/Resolved]

NARRATIVE: CASE EVENT DATE: 20221220
